FAERS Safety Report 8533519-2 (Version None)
Quarter: 2012Q3

REPORT INFORMATION
  Report Type: 
  Country: None (occurrence: None)
  Receive Date: 20120717
  Receipt Date: 20120717
  Transmission Date: 20120928
  Serious: Yes (Life-Threatening, Hospitalization)
  Sender: FDA-Public Use
  Company Number: None

PATIENT
  Age: 28 Year
  Sex: Female
  Weight: 71.2147 kg

DRUGS (1)
  1. METHADONE HCL [Suspect]
     Indication: OVERDOSE
     Dosage: 320 MG ONCE PO
     Route: 048
     Dates: start: 20120508, end: 20120508

REACTIONS (2)
  - TORSADE DE POINTES [None]
  - VOMITING [None]
